FAERS Safety Report 22130851 (Version 1)
Quarter: 2023Q1

REPORT INFORMATION
  Report Type: Spontaneous
  Country: US (occurrence: US)
  Receive Date: 20230323
  Receipt Date: 20230323
  Transmission Date: 20230417
  Serious: Yes (Other)
  Sender: FDA-Public Use
  Company Number: US-002147023-NVSC2023US062471

PATIENT

DRUGS (1)
  1. KYMRIAH [Suspect]
     Active Substance: TISAGENLECLEUCEL
     Indication: Acute lymphocytic leukaemia
     Dosage: UNK UNK, ONCE/SINGLE (3.7E6 CAR-POSITIVE VIABLE T-CELLS/KG BODY WEIGHT)
     Route: 042
     Dates: start: 20220425, end: 20220425

REACTIONS (1)
  - Acute lymphocytic leukaemia recurrent [Unknown]
